FAERS Safety Report 6784650-3 (Version None)
Quarter: 2010Q2

REPORT INFORMATION
  Report Type: 
  Country: None (occurrence: None)
  Receive Date: 20100622
  Receipt Date: 20100615
  Transmission Date: 20101027
  Serious: Yes (Life-Threatening)
  Sender: FDA-Public Use
  Company Number: B0660680A

PATIENT
  Sex: Female

DRUGS (18)
  1. ZELITREX [Suspect]
     Indication: HERPES ZOSTER
     Dosage: 500MG SIX TIMES PER DAY
     Route: 048
     Dates: start: 20100428, end: 20100429
  2. ALLOPURINOL [Suspect]
     Indication: DRUG USE FOR UNKNOWN INDICATION
     Dosage: 300MG PER DAY
     Route: 048
     Dates: end: 20100429
  3. TOPALGIC ( FRANCE ) [Suspect]
     Indication: SCIATICA
     Route: 048
     Dates: start: 20100421, end: 20100429
  4. GABAPENTIN [Suspect]
     Indication: NEURALGIA
     Dosage: 300MG PER DAY
     Route: 048
     Dates: start: 20100428, end: 20100429
  5. GLUCOPHAGE [Suspect]
     Indication: TYPE 2 DIABETES MELLITUS
     Dosage: 1000MG THREE TIMES PER DAY
     Route: 048
     Dates: end: 20100429
  6. ATENOLOL [Suspect]
     Indication: HYPERTENSION
     Dosage: 150MG PER DAY
     Route: 048
     Dates: end: 20100429
  7. LASIX [Suspect]
     Indication: HYPERTENSION
     Dosage: 40MG PER DAY
     Route: 048
     Dates: end: 20100429
  8. TENSTATEN [Suspect]
     Indication: HYPERTENSION
     Dosage: 50MG TWICE PER DAY
     Route: 048
     Dates: end: 20100429
  9. ACTONEL [Suspect]
     Indication: OSTEOPOROSIS
     Dosage: 35MG WEEKLY
     Route: 048
     Dates: end: 20100429
  10. CALCIDOSE VITAMIN D [Suspect]
     Indication: OSTEOPOROSIS
     Route: 048
     Dates: end: 20100429
  11. TARDYFERON [Suspect]
     Indication: DRUG USE FOR UNKNOWN INDICATION
     Dosage: 80MG TWICE PER DAY
     Route: 048
     Dates: end: 20100429
  12. MINI-SINTROM [Suspect]
     Indication: DRUG USE FOR UNKNOWN INDICATION
     Dosage: 1MG PER DAY
     Route: 048
     Dates: end: 20100429
  13. HUMALOG MIX [Concomitant]
     Indication: TYPE 2 DIABETES MELLITUS
     Route: 042
     Dates: end: 20100429
  14. INIPOMP [Concomitant]
     Route: 065
     Dates: end: 20100429
  15. PREDNISONE [Concomitant]
     Dosage: 13MG PER DAY
     Route: 065
     Dates: end: 20100429
  16. LANTUS [Concomitant]
     Route: 065
     Dates: end: 20100429
  17. COVERSYL [Concomitant]
     Route: 048
     Dates: end: 20100429
  18. HUMALOG [Concomitant]
     Indication: TYPE 2 DIABETES MELLITUS
     Route: 065
     Dates: end: 20100429

REACTIONS (16)
  - BLOOD GLUCOSE INCREASED [None]
  - BLOOD LACTIC ACID INCREASED [None]
  - COMA [None]
  - DEHYDRATION [None]
  - DRUG LEVEL INCREASED [None]
  - DRUG RESISTANCE [None]
  - FALL [None]
  - HERPES ZOSTER [None]
  - HYPOTENSION [None]
  - LUNG DISORDER [None]
  - NEURALGIA [None]
  - RENAL FAILURE ACUTE [None]
  - RESPIRATORY DISTRESS [None]
  - SCIATICA [None]
  - SEPSIS [None]
  - SHOCK [None]
